FAERS Safety Report 5864991-4 (Version None)
Quarter: 2008Q3

REPORT INFORMATION
  Report Type: 
  Country: None (occurrence: None)
  Receive Date: 20080829
  Receipt Date: 20080717
  Transmission Date: 20090109
  Serious: No
  Sender: FDA-Public Use
  Company Number: US-ABBOTT-08P-163-0464015-00

PATIENT
  Sex: Male
  Weight: 88.076 kg

DRUGS (8)
  1. SIMCOR [Suspect]
     Indication: HIGH DENSITY LIPOPROTEIN DECREASED
     Dosage: 500/20 MG AT HS
     Dates: start: 20080601, end: 20080701
  2. SIMCOR [Suspect]
  3. ACETYLSALICYLIC ACID SRT [Concomitant]
     Indication: PROPHYLAXIS
     Dosage: 1/2 HOUR BEFORE SIMCOR
     Route: 048
  4. ACETYLSALICYLIC ACID SRT [Concomitant]
     Indication: FLUSHING
  5. FUROSEMIDE [Concomitant]
     Indication: DIURETIC THERAPY
  6. LISINOPRIL [Concomitant]
     Indication: HYPERTENSION
  7. GENERIC FOR COREG [Concomitant]
     Indication: HYPERTENSION
  8. SIMVASTATIN [Concomitant]
     Indication: HIGH DENSITY LIPOPROTEIN DECREASED

REACTIONS (2)
  - ERYTHEMA [None]
  - FLUSHING [None]
